FAERS Safety Report 5607050-8 (Version None)
Quarter: 2008Q1

REPORT INFORMATION
  Report Type: 
  Country: None (occurrence: None)
  Receive Date: 20080129
  Receipt Date: 20080117
  Transmission Date: 20080703
  Serious: Yes (Other)
  Sender: FDA-Public Use
  Company Number: US-PFIZER INC-2008008096

PATIENT
  Sex: Male
  Weight: 71.7 kg

DRUGS (2)
  1. CHANTIX [Suspect]
     Indication: SMOKING CESSATION THERAPY
     Dates: start: 20071001, end: 20071101
  2. ASPIRIN [Concomitant]

REACTIONS (2)
  - HYPERTHYROIDISM [None]
  - TACHYCARDIA [None]
